FAERS Safety Report 15365421 (Version 2)
Quarter: 2018Q3

REPORT INFORMATION
  Report Type: Spontaneous
  Country: US (occurrence: US)
  Receive Date: 20180910
  Receipt Date: 20180926
  Transmission Date: 20181010
  Serious: No
  Sender: FDA-Public Use
  Company Number: US-PFIZER INC-2018359934

PATIENT
  Age: 64 Year
  Sex: Female
  Weight: 72.56 kg

DRUGS (2)
  1. EUCRISA [Suspect]
     Active Substance: CRISABOROLE
     Indication: DYSHIDROTIC ECZEMA
     Dosage: UNK
     Dates: start: 2018
  2. BYSTOLIC [Concomitant]
     Active Substance: NEBIVOLOL HYDROCHLORIDE
     Indication: BLOOD PRESSURE ABNORMAL
     Dosage: 2.5 MG, 1X/DAY
     Route: 048
     Dates: start: 20180902

REACTIONS (3)
  - Rash pruritic [Unknown]
  - Eczema [Unknown]
  - Rash [Recovered/Resolved]

NARRATIVE: CASE EVENT DATE: 2018
